FAERS Safety Report 23175487 (Version 3)
Quarter: 2023Q4

REPORT INFORMATION
  Report Type: Spontaneous
  Country: NZ (occurrence: NZ)
  Receive Date: 20231113
  Receipt Date: 20231231
  Transmission Date: 20240109
  Serious: Yes (Other)
  Sender: FDA-Public Use
  Company Number: NZ-PFIZER INC-202300200593

PATIENT
  Age: 65 Year
  Sex: Female
  Weight: 61 kg

DRUGS (12)
  1. ENBREL [Suspect]
     Active Substance: ETANERCEPT
     Indication: Ankylosing spondylitis
     Dosage: 50 MG, WEEKLY
     Route: 065
     Dates: start: 20230523
  2. ENBREL [Suspect]
     Active Substance: ETANERCEPT
     Dosage: UNK
     Route: 065
     Dates: start: 20230704
  3. DILTIAZEM [Concomitant]
     Active Substance: DILTIAZEM
     Indication: Atrial fibrillation
     Dosage: UNK UNK, DAILY
     Dates: start: 20220703
  4. DILTIAZEM [Concomitant]
     Active Substance: DILTIAZEM
     Dosage: 120 MG, 1X/DAY
     Dates: start: 20230926
  5. BRIMONIDINE [Concomitant]
     Active Substance: BRIMONIDINE TARTRATE
     Indication: Glaucoma
     Dosage: UNK, 2X/DAY
  6. BRIMONIDINE [Concomitant]
     Active Substance: BRIMONIDINE TARTRATE
     Dosage: 5 ML
     Dates: start: 20230801
  7. DORTIMOPT [Concomitant]
     Indication: Glaucoma
     Dosage: UNK UNK, 2X/DAY
  8. DORTIMOPT [Concomitant]
     Dosage: 5 ML
     Dates: start: 20230926
  9. VITAMIN D NOS [Concomitant]
     Active Substance: VITAMIN D NOS
     Indication: Bone disorder
     Dosage: 1.25 MILLIGRAM, QMO
  10. VITAMIN D NOS [Concomitant]
     Active Substance: VITAMIN D NOS
     Dosage: 1.25 MILLIGRAM
     Dates: start: 20230926
  11. XARELTO [Concomitant]
     Active Substance: RIVAROXABAN
     Indication: Atrial fibrillation
     Dosage: UNK, DAILY
     Dates: start: 20220703
  12. XARELTO [Concomitant]
     Active Substance: RIVAROXABAN
     Dosage: 15 MG
     Dates: start: 20230926

REACTIONS (7)
  - Atrial fibrillation [Unknown]
  - Injection site pain [Not Recovered/Not Resolved]
  - Contusion [Unknown]
  - Headache [Not Recovered/Not Resolved]
  - Injection site rash [Not Recovered/Not Resolved]
  - Injection site pruritus [Not Recovered/Not Resolved]
  - Inflammation [Not Recovered/Not Resolved]

NARRATIVE: CASE EVENT DATE: 20230501
